FAERS Safety Report 6114850-7 (Version None)
Quarter: 2009Q1

REPORT INFORMATION
  Report Type: 
  Country: None (occurrence: None)
  Receive Date: 20090311
  Receipt Date: 20080314
  Transmission Date: 20090719
  Serious: Yes (Other)
  Sender: FDA-Public Use
  Company Number: US200803003833

PATIENT
  Sex: Female

DRUGS (2)
  1. GEMZAR [Suspect]
     Indication: BREAST CANCER
     Dosage: APPROX. SIX CYCLES
     Dates: start: 20080101, end: 20080201
  2. AVASTIN [Concomitant]

REACTIONS (1)
  - RENAL FAILURE [None]
